FAERS Safety Report 4428186-3 (Version None)
Quarter: 2004Q3

REPORT INFORMATION
  Report Type: 
  Country: None (occurrence: None)
  Receive Date: 20040726
  Receipt Date: 20040726
  Transmission Date: 20050211
  Serious: No
  Sender: FDA-Public Use
  Company Number: USA031051184

PATIENT
  Age: 75 Year
  Sex: Female

DRUGS (1)
  1. FORTEO [Suspect]
     Indication: OSTEOPOROSIS
     Dosage: 20 UG/ 1 DAY
     Dates: start: 20030901

REACTIONS (5)
  - ARTHRALGIA [None]
  - FATIGUE [None]
  - INJECTION SITE HAEMORRHAGE [None]
  - MIDDLE INSOMNIA [None]
  - PAIN IN EXTREMITY [None]
